FAERS Safety Report 14528575 (Version 1)
Quarter: 2018Q1

REPORT INFORMATION
  Report Type: Spontaneous
  Country: FR (occurrence: FR)
  Receive Date: 20180214
  Receipt Date: 20180214
  Transmission Date: 20180509
  Serious: Yes (Death)
  Sender: FDA-Public Use
  Company Number: FR-SUN PHARMACEUTICAL INDUSTRIES LTD-2018RR-163141

PATIENT
  Age: 79 Year
  Sex: Male
  Weight: 61 kg

DRUGS (2)
  1. OXALIPLATIN. [Suspect]
     Active Substance: OXALIPLATIN
     Dosage: ()
     Route: 042
     Dates: start: 20170601, end: 20170601
  2. FLUOROURACILE [Suspect]
     Active Substance: FLUOROURACIL
     Indication: RECTAL CANCER
     Dosage: ()
     Route: 042
     Dates: start: 20170601, end: 20170601

REACTIONS (2)
  - Septic shock [Fatal]
  - Aplasia [Fatal]

NARRATIVE: CASE EVENT DATE: 201706
